FAERS Safety Report 14318745 (Version 1)
Quarter: 2017Q4

REPORT INFORMATION
  Report Type: Spontaneous
  Country: CZ (occurrence: CZ)
  Receive Date: 20171222
  Receipt Date: 20171222
  Transmission Date: 20180321
  Serious: Yes (Other)
  Sender: FDA-Public Use
  Company Number: CZ-PFIZER INC-2017545636

PATIENT
  Sex: Male

DRUGS (2)
  1. NEURONTIN [Suspect]
     Active Substance: GABAPENTIN
     Dosage: THREE TIMES 300 MG
  2. LYRICA [Suspect]
     Active Substance: PREGABALIN

REACTIONS (2)
  - Headache [Recovered/Resolved]
  - Visual impairment [Not Recovered/Not Resolved]
